FAERS Safety Report 22527979 (Version 1)
Quarter: 2023Q2

REPORT INFORMATION
  Report Type: Spontaneous
  Country: JP (occurrence: JP)
  Receive Date: 20230606
  Receipt Date: 20230606
  Transmission Date: 20230722
  Serious: Yes (Other)
  Sender: FDA-Public Use
  Company Number: JP-002147023-NVSJ2023JP009296

PATIENT
  Sex: Female
  Weight: 60.3 kg

DRUGS (7)
  1. AMOXICILLIN [Suspect]
     Active Substance: AMOXICILLIN
     Indication: Syphilis
     Dosage: 1500 MG
     Route: 048
     Dates: start: 20181113, end: 20190211
  2. AMOXICILLIN [Suspect]
     Active Substance: AMOXICILLIN
     Dosage: 1500 MG
     Route: 048
  3. SODIUM FERROUS CITRATE [Concomitant]
     Active Substance: SODIUM FERROUS CITRATE
     Indication: Iron deficiency anaemia
     Dosage: 150 MG
     Route: 048
     Dates: start: 20181113, end: 20181216
  4. FESIN [Concomitant]
     Indication: Iron deficiency anaemia
     Dosage: 80 MG
     Route: 042
     Dates: start: 20181116, end: 20181216
  5. AZITHROMYCIN [Concomitant]
     Active Substance: AZITHROMYCIN
     Indication: Chlamydial cervicitis
     Dosage: 1000 MG
     Route: 048
     Dates: start: 20181130, end: 20190524
  6. AZITHROMYCIN [Concomitant]
     Active Substance: AZITHROMYCIN
     Dosage: 1000 MG
     Route: 048
  7. METRONIDAZOLE [Concomitant]
     Active Substance: METRONIDAZOLE
     Indication: Syphilis
     Dosage: 250 MG
     Route: 065

REACTIONS (5)
  - Enterocolitis [Unknown]
  - Influenza [Unknown]
  - Constipation [Unknown]
  - Gastritis [Unknown]
  - Cough [Unknown]
